FAERS Safety Report 10473889 (Version 1)
Quarter: 2014Q3

REPORT INFORMATION
  Report Type: Spontaneous
  Country: CN (occurrence: CN)
  Receive Date: 20140924
  Receipt Date: 20140924
  Transmission Date: 20150326
  Serious: Yes (Other)
  Sender: FDA-Public Use
  Company Number: CN-JNJFOC-20140914058

PATIENT
  Age: 67 Year
  Sex: Male

DRUGS (1)
  1. NIZORAL [Suspect]
     Active Substance: KETOCONAZOLE
     Indication: DERMATOPHYTOSIS
     Route: 048
     Dates: start: 20130530, end: 20130601

REACTIONS (2)
  - Haemorrhage subcutaneous [Unknown]
  - Mass [Unknown]

NARRATIVE: CASE EVENT DATE: 20130601
